FAERS Safety Report 20581006 (Version 2)
Quarter: 2022Q2

REPORT INFORMATION
  Report Type: Report from Study
  Country: US (occurrence: US)
  Receive Date: 20220311
  Receipt Date: 20220407
  Transmission Date: 20220721
  Serious: Yes (Other)
  Sender: FDA-Public Use
  Company Number: US-ABBVIE-22K-163-4302213-00

PATIENT
  Age: 30 Year
  Sex: Male
  Weight: 70.370 kg

DRUGS (4)
  1. HUMIRA [Suspect]
     Active Substance: ADALIMUMAB
     Indication: Colitis ulcerative
     Dosage: CITRATE FREE
     Route: 058
     Dates: start: 202103, end: 202109
  2. HUMIRA [Suspect]
     Active Substance: ADALIMUMAB
     Dosage: CITRATE FREE
     Route: 058
     Dates: start: 202109
  3. MESALAMINE [Concomitant]
     Active Substance: MESALAMINE
     Indication: Colitis ulcerative
  4. ACYCLOVIR [Concomitant]
     Active Substance: ACYCLOVIR
     Indication: Oral herpes

REACTIONS (2)
  - Systemic lupus erythematosus [Recovering/Resolving]
  - Unevaluable event [Recovering/Resolving]

NARRATIVE: CASE EVENT DATE: 20211001
